FAERS Safety Report 7737780-3 (Version None)
Quarter: 2011Q3

REPORT INFORMATION
  Report Type: 
  Country: None (occurrence: None)
  Receive Date: 20110908
  Receipt Date: 20110829
  Transmission Date: 20111222
  Serious: Yes (Hospitalization)
  Sender: FDA-Public Use
  Company Number: US-SANOFI-AVENTIS-2011SA055833

PATIENT

DRUGS (5)
  1. SOLOSTAR [Suspect]
  2. SOLOSTAR [Suspect]
  3. APIDRA [Suspect]
     Route: 058
  4. APIDRA [Suspect]
     Dosage: DOSE:20 UNIT(S)
     Route: 058
     Dates: start: 20110827, end: 20110827
  5. LANTUS [Suspect]
     Dosage: DOSE:20 UNIT(S)
     Route: 058

REACTIONS (2)
  - HOSPITALISATION [None]
  - WRONG DRUG ADMINISTERED [None]
